FAERS Safety Report 20371737 (Version 1)
Quarter: 2022Q1

REPORT INFORMATION
  Report Type: Other
  Country: GR (occurrence: None)
  Receive Date: 20220124
  Receipt Date: 20220124
  Transmission Date: 20220423
  Serious: Yes (Hospitalization)
  Sender: FDA-Public Use
  Company Number: GR-Merck Healthcare KGaA-9293250

PATIENT
  Age: 15 Year
  Sex: Male

DRUGS (1)
  1. SOMATROPIN [Suspect]
     Active Substance: SOMATROPIN
     Indication: Hypopituitarism

REACTIONS (2)
  - Meningitis aseptic [Recovered/Resolved]
  - Roseolovirus test positive [Recovered/Resolved]
